FAERS Safety Report 17374879 (Version 1)
Quarter: 2020Q1

REPORT INFORMATION
  Report Type: Spontaneous
  Country: US (occurrence: US)
  Receive Date: 20200204
  Receipt Date: 20200204
  Transmission Date: 20200409
  Serious: Yes (Hospitalization)
  Sender: FDA-Public Use
  Company Number: None

PATIENT
  Age: 69 Year
  Sex: Female

DRUGS (11)
  1. VANOMYCIN CAP 125 MG [Concomitant]
  2. DOXYCYCL HYC TAB 100 MG [Concomitant]
  3. OMEPRAZOLE CAP 40 MG [Concomitant]
  4. DICLOFENAC GEL 1% [Concomitant]
     Active Substance: DICLOFENAC
  5. SILDENAFIL. [Suspect]
     Active Substance: SILDENAFIL
     Indication: PULMONARY ARTERIAL HYPERTENSION
     Route: 048
     Dates: start: 20190222
  6. TRAMADOL HCL TAB 50 MG [Concomitant]
  7. POT CHLORIDE TAB 20 MEQ ER [Concomitant]
  8. RENA-VITE TAB [Concomitant]
  9. CARVEDILOL TAB 3.125 MG [Concomitant]
  10. TORSEMIDE TAB 20 MG [Concomitant]
  11. GABAPENTIN CAP 300 MG [Concomitant]

REACTIONS (1)
  - Impaired healing [None]

NARRATIVE: CASE EVENT DATE: 20200203
